FAERS Safety Report 21846280 (Version 4)
Quarter: 2023Q4

REPORT INFORMATION
  Report Type: Spontaneous
  Country: US (occurrence: US)
  Receive Date: 20230111
  Receipt Date: 20231219
  Transmission Date: 20240110
  Serious: Yes (Other)
  Sender: FDA-Public Use
  Company Number: US-GSKCCFUS-Case-01597344_AE-90258

PATIENT

DRUGS (2)
  1. NUCALA [Suspect]
     Active Substance: MEPOLIZUMAB
     Indication: Asthma
     Dosage: UNK, MO (ONCE A MONTH)
  2. NUCALA [Suspect]
     Active Substance: MEPOLIZUMAB
     Indication: Polyp

REACTIONS (9)
  - Essential thrombocythaemia [Unknown]
  - Epistaxis [Recovered/Resolved]
  - Deficiency anaemia [Unknown]
  - Asthma [Unknown]
  - Ageusia [Unknown]
  - Anosmia [Unknown]
  - Illness [Unknown]
  - Nasopharyngitis [Unknown]
  - Malaise [Unknown]

NARRATIVE: CASE EVENT DATE: 20231125
